FAERS Safety Report 9723668 (Version 2)
Quarter: 2013Q4

REPORT INFORMATION
  Report Type: Spontaneous
  Country: JP (occurrence: JP)
  Receive Date: 20131202
  Receipt Date: 20131202
  Transmission Date: 20140711
  Serious: Yes (Life-Threatening, Hospitalization, Other)
  Sender: FDA-Public Use
  Company Number: JP-PFIZER INC-2013321366

PATIENT
  Age: 60 Year
  Sex: Male
  Weight: 83 kg

DRUGS (16)
  1. LYRICA [Suspect]
     Indication: SPINAL LIGAMENT OSSIFICATION
     Dosage: 75 MG, 2X/DAY
     Route: 048
     Dates: start: 20130930
  2. LYRICA [Suspect]
     Indication: BACK PAIN
  3. BAYASPIRIN [Concomitant]
     Indication: ANGINA PECTORIS
     Dosage: 100 MG, 1X/DAY
     Route: 048
     Dates: start: 201203
  4. DEPAS [Concomitant]
     Indication: INSOMNIA
     Dosage: 0.5 MG, 1X/DAY, OR 1 MG AS NEEDED
     Route: 048
  5. WARFARIN [Concomitant]
     Indication: CORONARY ARTERY BYPASS
     Dosage: 2 MG, 1X/DAY
     Route: 048
     Dates: start: 20130614, end: 20130916
  6. WARFARIN [Concomitant]
     Dosage: 1.75 MG, 1X/DAY
     Route: 048
     Dates: start: 20130925
  7. LASIX [Concomitant]
     Indication: CORONARY ARTERY BYPASS
     Dosage: 20 MG, 1X/DAY
     Route: 048
     Dates: start: 20120907
  8. PARIET [Concomitant]
     Indication: GASTRIC ULCER
     Dosage: 10 MG, 1X/DAY
     Route: 048
     Dates: start: 20121214
  9. NOVORAPID [Concomitant]
     Indication: DIABETES MELLITUS
     Dosage: 32 IU, DAILY (12 UNITS IN THE MORNING, 12 UNITS AT NOON, AND 8 UNITS IN THE EVENING)
     Route: 058
     Dates: start: 20130816, end: 20130912
  10. NOVORAPID [Concomitant]
     Dosage: 36 IU, DAILY (12 UNITS IN THE MORNING, 12 UNITS AT NOON, AND 12 UNITS IN THE EVENING)
     Route: 058
     Dates: start: 20130913
  11. PRORENAL [Concomitant]
     Indication: SPINAL LIGAMENT OSSIFICATION
     Dosage: 5 UG, 3X/DAY
     Route: 048
     Dates: start: 20130930
  12. NEULEPTIL [Concomitant]
     Indication: SCHIZOPHRENIA
     Dosage: 25 MG, 1X/DAY
     Route: 048
  13. TOLEDOMIN [Concomitant]
     Indication: SPINAL LIGAMENT OSSIFICATION
     Dosage: 15 MG, 2X/DAY
     Route: 048
     Dates: start: 20130913, end: 20131003
  14. VOLTAREN [Concomitant]
     Indication: SPINAL LIGAMENT OSSIFICATION
     Dosage: 25 MG, AS NEEDED
     Route: 048
     Dates: start: 20130913
  15. UREPEARL [Concomitant]
     Indication: RASH
     Dosage: 10 %, 2X/DAY
     Route: 062
     Dates: start: 20130913
  16. VOALLA [Concomitant]
     Indication: RASH
     Dosage: 0.12 %, 2X/DAY
     Route: 062
     Dates: start: 20130913

REACTIONS (6)
  - Off label use [Unknown]
  - Intentional drug misuse [Unknown]
  - Altered state of consciousness [Recovered/Resolved]
  - Respiratory acidosis [Recovered/Resolved]
  - Hypercapnia [Recovered/Resolved]
  - Somnolence [Unknown]
